FAERS Safety Report 7382196-5 (Version None)
Quarter: 2011Q1

REPORT INFORMATION
  Report Type: 
  Country: None (occurrence: None)
  Receive Date: 20110329
  Receipt Date: 20101227
  Transmission Date: 20110831
  Serious: No
  Sender: FDA-Public Use
  Company Number: US-BAYER-2011-025461

PATIENT
  Sex: Male
  Weight: 79 kg

DRUGS (3)
  1. VITAMIN D [Concomitant]
  2. ONE A DAY MEN'S 50 PLUS ADVANTAGE [Suspect]
     Indication: VITAMIN SUPPLEMENTATION
     Dosage: 1 DF, ONCE
     Route: 048
     Dates: start: 20100101
  3. NEXIUM [Concomitant]

REACTIONS (2)
  - NAUSEA [None]
  - ABDOMINAL DISCOMFORT [None]
